FAERS Safety Report 9686086 (Version 2)
Quarter: 2013Q4

REPORT INFORMATION
  Report Type: Spontaneous
  Country: US (occurrence: US)
  Receive Date: 20131113
  Receipt Date: 20131113
  Transmission Date: 20140711
  Serious: No
  Sender: FDA-Public Use
  Company Number: US-ALLERGAN-1210054US

PATIENT
  Age: 64 Year
  Sex: Female
  Weight: 74.83 kg

DRUGS (1)
  1. COMBIGAN[R] [Suspect]
     Indication: GLAUCOMA
     Dosage: UNK UNK, BID
     Route: 047
     Dates: start: 20120521, end: 20120720

REACTIONS (1)
  - Asthma [Recovered/Resolved]
